FAERS Safety Report 8339034-3 (Version None)
Quarter: 2012Q2

REPORT INFORMATION
  Report Type: 
  Country: None (occurrence: None)
  Receive Date: 20120502
  Receipt Date: 20120430
  Transmission Date: 20120825
  Serious: Yes (Hospitalization, Other)
  Sender: FDA-Public Use
  Company Number: ADR-2011-11605

PATIENT
  Sex: Female

DRUGS (2)
  1. LIORESAL [Suspect]
     Indication: CEREBRAL PALSY
     Dosage: 493.0 MCG/DAY
  2. LIORESAL [Suspect]
     Indication: MUSCLE SPASTICITY
     Dosage: 493.0 MCG/DAY

REACTIONS (13)
  - IRRITABILITY [None]
  - CRYING [None]
  - HEART RATE ABNORMAL [None]
  - DEVICE DISLOCATION [None]
  - VOLVULUS [None]
  - DEVICE KINK [None]
  - PYREXIA [None]
  - DRUG WITHDRAWAL SYNDROME [None]
  - PAIN [None]
  - MUSCLE SPASMS [None]
  - CONVULSION [None]
  - HYPERHIDROSIS [None]
  - DEVICE INVERSION [None]
